FAERS Safety Report 6755763-7 (Version None)
Quarter: 2010Q2

REPORT INFORMATION
  Report Type: 
  Country: None (occurrence: None)
  Receive Date: 20100604
  Receipt Date: 20100526
  Transmission Date: 20101027
  Serious: Yes (Hospitalization)
  Sender: FDA-Public Use
  Company Number: CA-JNJFOC-20090703687

PATIENT
  Age: 42 Year
  Sex: Female
  Weight: 51.7 kg

DRUGS (1)
  1. REMICADE [Suspect]
     Indication: CROHN'S DISEASE
     Dosage: DOSE ^3 VIALS;^ 14 INFUSIONS TO PRESENT, REPORTED START DATE ^?2007^
     Route: 042

REACTIONS (1)
  - MENTAL DISORDER [None]
